FAERS Safety Report 17761089 (Version 1)
Quarter: 2020Q2

REPORT INFORMATION
  Report Type: Spontaneous
  Country: FR (occurrence: FR)
  Receive Date: 20200508
  Receipt Date: 20200508
  Transmission Date: 20200714
  Serious: Yes (Hospitalization)
  Sender: FDA-Public Use
  Company Number: FR-PFIZER INC-2020181754

PATIENT
  Age: 77 Year
  Sex: Female
  Weight: 98 kg

DRUGS (3)
  1. AUGMENTIN [Suspect]
     Active Substance: AMOXICILLIN\CLAVULANATE POTASSIUM
     Indication: INFECTION
     Dosage: 6 G
     Route: 042
     Dates: start: 20200322, end: 20200327
  2. AMOXICILLIN BASE [Suspect]
     Active Substance: AMOXICILLIN
     Indication: INFECTION
     Dosage: 6 G
     Route: 048
     Dates: start: 20200328, end: 20200331
  3. DALACINE [Suspect]
     Active Substance: CLINDAMYCIN
     Indication: INFECTION
     Dosage: 1800 MG
     Route: 048
     Dates: start: 20200327, end: 20200331

REACTIONS (4)
  - Purpura [Recovered/Resolved]
  - Rash maculo-papular [Recovered/Resolved]
  - Toxic skin eruption [Recovered/Resolved]
  - Hyperthermia [Recovered/Resolved]

NARRATIVE: CASE EVENT DATE: 20200330
